FAERS Safety Report 7472735-8 (Version None)
Quarter: 2011Q2

REPORT INFORMATION
  Report Type: 
  Country: None (occurrence: None)
  Receive Date: 20110511
  Receipt Date: 20110509
  Transmission Date: 20111010
  Serious: Yes (Hospitalization, Other)
  Sender: FDA-Public Use
  Company Number: US-PFIZER INC-2011098946

PATIENT
  Sex: Female

DRUGS (2)
  1. OPANA ER [Suspect]
     Route: 055
  2. XANAX [Suspect]

REACTIONS (6)
  - DRUG ABUSE [None]
  - ACCIDENTAL OVERDOSE [None]
  - WAXY FLEXIBILITY [None]
  - LOSS OF CONSCIOUSNESS [None]
  - DYSPNOEA [None]
  - HYPOXIA [None]
